FAERS Safety Report 7392236-5 (Version None)
Quarter: 2011Q2

REPORT INFORMATION
  Report Type: 
  Country: None (occurrence: None)
  Receive Date: 20110404
  Receipt Date: 20110329
  Transmission Date: 20111010
  Serious: Yes (Life-Threatening, Hospitalization)
  Sender: FDA-Public Use
  Company Number: FR-MERCK-1006FRA00071

PATIENT
  Age: 58 Year
  Sex: Female

DRUGS (11)
  1. ARANESP [Concomitant]
     Indication: ANAEMIA
     Route: 058
  2. KIVEXA [Suspect]
     Indication: HIV INFECTION
     Route: 048
     Dates: start: 20101021, end: 20101115
  3. ISENTRESS [Suspect]
     Indication: HIV INFECTION
     Route: 048
     Dates: start: 20100318, end: 20100514
  4. INIPOMP [Concomitant]
     Indication: PROPHYLAXIS
     Route: 048
     Dates: start: 20071011
  5. ISENTRESS [Suspect]
     Route: 048
     Dates: start: 20101021, end: 20101115
  6. REPAGLINIDE [Concomitant]
     Indication: TYPE 2 DIABETES MELLITUS
     Route: 048
  7. RASILEZ [Suspect]
     Indication: HYPERTENSION
     Route: 048
     Dates: start: 20101104
  8. HYPERIUM [Concomitant]
     Indication: HYPERTENSION
     Route: 065
     Dates: start: 20101104, end: 20101110
  9. COMBIVIR [Suspect]
     Indication: HIV INFECTION
     Route: 048
     Dates: start: 20100318, end: 20100514
  10. IRBESARTAN [Concomitant]
     Indication: HYPERTENSION
     Route: 048
     Dates: start: 20100424, end: 20101104
  11. LOXEN [Concomitant]
     Indication: HYPERTENSION
     Route: 065
     Dates: start: 20101104, end: 20101108

REACTIONS (3)
  - RASH [None]
  - NEUTROPENIA [None]
  - SEPSIS [None]
